FAERS Safety Report 9160089 (Version 2)
Quarter: 2013Q2

REPORT INFORMATION
  Report Type: Spontaneous
  Country: US (occurrence: None)
  Receive Date: 20130220
  Receipt Date: 20130624
  Transmission Date: 20140414
  Serious: Yes (Other)
  Sender: FDA-Public Use
  Company Number: USA/USA/13/0028061

PATIENT
  Age: 42 Year
  Sex: Male

DRUGS (3)
  1. QUETIAPINE FUMARATE [Suspect]
     Indication: SCHIZOPHRENIA
     Route: 048
  2. ARIPIPRAZOLE [Suspect]
     Indication: PRODUCT USED FOR UNKNOWN INDICATION
     Route: 048
  3. FAMOTIDINE (FAMOTIDINE) [Concomitant]

REACTIONS (14)
  - Electrocardiogram QT prolonged [None]
  - Cardiac arrest [None]
  - Torsade de pointes [None]
  - Sepsis [None]
  - Renal failure [None]
  - Adrenal insufficiency [None]
  - Acute respiratory distress syndrome [None]
  - Delirium [None]
  - Chills [None]
  - Diarrhoea [None]
  - Mental status changes [None]
  - Blood magnesium decreased [None]
  - Blood calcium decreased [None]
  - Schizophrenia [None]
